FAERS Safety Report 7310864-X (Version None)
Quarter: 2011Q1

REPORT INFORMATION
  Report Type: 
  Country: None (occurrence: None)
  Receive Date: 20110224
  Receipt Date: 20110222
  Transmission Date: 20110831
  Serious: Yes (Other)
  Sender: FDA-Public Use
  Company Number: US-ABBOTT-10P-163-0694296-00

PATIENT
  Sex: Female
  Weight: 60.836 kg

DRUGS (13)
  1. LANOXIN [Concomitant]
     Indication: ATRIAL FIBRILLATION
  2. VITAMIN D [Concomitant]
     Indication: PRODUCT USED FOR UNKNOWN INDICATION
  3. CARDIZEM LA [Concomitant]
     Indication: HYPERTENSION
  4. WARFARIN [Concomitant]
     Indication: ATRIAL FIBRILLATION
     Dosage: 2 ONCE EVERY 3 DAYS, 1.5 FOR 2 DAYS
  5. SINGULAIR [Concomitant]
     Indication: ASTHMA
  6. HUMIRA [Suspect]
     Indication: RHEUMATOID ARTHRITIS
     Dates: start: 20050901
  7. LEVOTHYROXINE SODIUM [Concomitant]
     Indication: HYPOTHYROIDISM
  8. Q-VAR INHALER [Concomitant]
     Indication: ASTHMA
     Route: 055
  9. METHOTREXATE [Concomitant]
     Indication: PRODUCT USED FOR UNKNOWN INDICATION
     Route: 048
  10. DIOVAN [Concomitant]
     Indication: HYPERTENSION
  11. CELEBREX [Concomitant]
     Indication: RHEUMATOID ARTHRITIS
  12. FOLIC ACID [Concomitant]
     Indication: VITAMIN SUPPLEMENTATION
  13. LOVASTATIN [Concomitant]
     Indication: BLOOD CHOLESTEROL INCREASED

REACTIONS (9)
  - NAIL INJURY [None]
  - PAIN IN EXTREMITY [None]
  - FOOT DEFORMITY [None]
  - SINUSITIS [None]
  - HAEMORRHAGE [None]
  - ONYCHOMYCOSIS [None]
  - ATRIAL FIBRILLATION [None]
  - UPPER RESPIRATORY TRACT INFECTION [None]
  - DENTAL CARIES [None]
